FAERS Safety Report 24318713 (Version 2)
Quarter: 2024Q3

REPORT INFORMATION
  Report Type: Report from Study
  Country: US (occurrence: US)
  Receive Date: 20240913
  Receipt Date: 20240927
  Transmission Date: 20241016
  Serious: Yes (Life-Threatening, Hospitalization)
  Sender: CALLIDITAS THERAPEUTICS
  Company Number: US-Calliditas-2024CAL01248

PATIENT
  Age: 54 Year
  Sex: Male

DRUGS (7)
  1. TARPEYO [Suspect]
     Active Substance: BUDESONIDE
     Indication: IgA nephropathy
     Route: 048
     Dates: start: 20240612
  2. ATORVASTATIN [Concomitant]
     Active Substance: ATORVASTATIN
  3. CHLORTHALIDONE [Concomitant]
     Active Substance: CHLORTHALIDONE
  4. LOSARTAN [Concomitant]
     Active Substance: LOSARTAN\LOSARTAN POTASSIUM
  5. CARVEDILOL [Concomitant]
     Active Substance: CARVEDILOL
  6. HYDRALAZINE [Concomitant]
     Active Substance: HYDRALAZINE HYDROCHLORIDE
  7. VITAMIN D2 [Concomitant]
     Active Substance: ERGOCALCIFEROL

REACTIONS (19)
  - Acne [Not Recovered/Not Resolved]
  - Increased appetite [Not Recovered/Not Resolved]
  - Taste disorder [Not Recovered/Not Resolved]
  - Oedema peripheral [Not Recovered/Not Resolved]
  - Swelling [Not Recovered/Not Resolved]
  - Face oedema [Not Recovered/Not Resolved]
  - Muscle spasms [Recovering/Resolving]
  - Blood potassium decreased [Recovering/Resolving]
  - Blood calcium decreased [Recovering/Resolving]
  - Product dose omission issue [Recovered/Resolved]
  - Trigger finger [Unknown]
  - Cellulitis [Unknown]
  - Weight decreased [Recovering/Resolving]
  - Pallor [Unknown]
  - Fatigue [Unknown]
  - Gout [Unknown]
  - Dehydration [Unknown]
  - Glomerular filtration rate decreased [Recovering/Resolving]
  - Dysphonia [Unknown]

NARRATIVE: CASE EVENT DATE: 20240630
